FAERS Safety Report 7112736-2 (Version None)
Quarter: 2010Q4

REPORT INFORMATION
  Report Type: 
  Country: None (occurrence: None)
  Receive Date: 20101119
  Receipt Date: 20101112
  Transmission Date: 20110411
  Serious: Yes (Hospitalization)
  Sender: FDA-Public Use
  Company Number: DE-BRISTOL-MYERS SQUIBB COMPANY-14957823

PATIENT
  Age: 71 Year
  Sex: Male
  Weight: 84 kg

DRUGS (3)
  1. CETUXIMAB [Suspect]
     Indication: NON-SMALL CELL LUNG CANCER
     Dosage: DOSE FREQUENCY:DAY 1 OF CYCLE 1.  250MG/M2 WEEKLY(1/W),395MG. RECENT INF:10NOV09 STOP:24NOV09
     Route: 042
     Dates: start: 20090901, end: 20091124
  2. CISPLATIN [Suspect]
     Indication: NON-SMALL CELL LUNG CANCER
     Dosage: DOSE FREQUENCY:DAY 1 EVERY 21 DAYS. 111.5MG RECENT INF:18NOV09
     Route: 042
     Dates: start: 20090901, end: 20091124
  3. ALIMTA [Suspect]
     Indication: NON-SMALL CELL LUNG CANCER
     Dosage: DOSE FREQUENCY: DAY 1 OF EVERY 21 DAYS. RECENT INF:18NOV09 737.5MG
     Route: 042
     Dates: start: 20090901, end: 20091124

REACTIONS (4)
  - ANAEMIA [None]
  - HERPES ZOSTER [None]
  - MUCOSAL INFLAMMATION [None]
  - THROMBOCYTOPENIA [None]
